FAERS Safety Report 8544861-3 (Version None)
Quarter: 2012Q3

REPORT INFORMATION
  Report Type: 
  Country: None (occurrence: None)
  Receive Date: 20120727
  Receipt Date: 20120719
  Transmission Date: 20120928
  Serious: Yes (Other)
  Sender: FDA-Public Use
  Company Number: US-JNJFOC-20120404456

PATIENT
  Sex: Male
  Weight: 86.18 kg

DRUGS (17)
  1. PRILOSEC [Concomitant]
     Indication: GASTROOESOPHAGEAL REFLUX DISEASE
     Dosage: 20 MG TWICE DAILY
     Route: 048
  2. NITROGLYCERIN [Concomitant]
     Indication: CHEST PAIN
     Dosage: EVERY 15 MINUTES AS DIRECTED
     Route: 060
  3. ZESTORETIC [Concomitant]
     Indication: HYPERTENSION
     Dosage: 12.6 AND 12.5 MG
     Route: 048
  4. FENTANYL-100 [Suspect]
     Indication: PRODUCT USED FOR UNKNOWN INDICATION
     Dosage: NDC0781-7243-55
     Route: 062
  5. XANAX [Concomitant]
     Indication: ANXIETY
     Dosage: 2*0.5MG
     Route: 048
     Dates: start: 20020101
  6. XANAX [Concomitant]
     Route: 048
     Dates: start: 20020101
  7. FENTANYL-100 [Suspect]
     Route: 062
     Dates: start: 20110101
  8. FENTANYL-100 [Suspect]
     Route: 062
     Dates: start: 20110101, end: 20110101
  9. XANAX [Concomitant]
     Dosage: 2*0.5MG
     Route: 048
     Dates: start: 20020101
  10. FENTANYL-100 [Suspect]
     Route: 062
  11. SIMVASTATIN [Concomitant]
     Indication: BLOOD CHOLESTEROL INCREASED
     Route: 048
     Dates: start: 20020101
  12. ASPIRIN [Concomitant]
     Indication: CORONARY ARTERIAL STENT INSERTION
     Route: 048
     Dates: start: 20010101
  13. FISH OIL [Concomitant]
     Route: 048
     Dates: start: 20000101
  14. PLAVIX [Concomitant]
     Indication: PRODUCT USED FOR UNKNOWN INDICATION
     Route: 048
  15. XANAX [Concomitant]
     Indication: DEPRESSION
     Route: 048
     Dates: start: 20020101
  16. LOPRESSOR [Concomitant]
     Indication: HYPERTENSION
     Route: 048
     Dates: start: 20000101, end: 20111201
  17. NORCO [Concomitant]
     Indication: PAIN
     Dosage: 10/325MG 2-3 TABLETS DAILY AS NEEDED. NOT TO EXCEED 6 PER DAY
     Route: 048

REACTIONS (4)
  - PRODUCT QUALITY ISSUE [None]
  - DRUG INEFFECTIVE [None]
  - INFECTED SKIN ULCER [None]
  - POOR QUALITY DRUG ADMINISTERED [None]
